FAERS Safety Report 16279513 (Version 1)
Quarter: 2019Q2

REPORT INFORMATION
  Report Type: Spontaneous
  Country: NO (occurrence: NO)
  Receive Date: 20190507
  Receipt Date: 20190507
  Transmission Date: 20190711
  Serious: Yes (Other)
  Sender: FDA-Public Use
  Company Number: NO-ALK-ABELLO A/S-2019AA001729

PATIENT

DRUGS (3)
  1. GRAZAX [Suspect]
     Active Substance: PHLEUM PRATENSE POLLEN
     Indication: SEASONAL ALLERGY
     Dosage: UNK
     Dates: start: 20180110, end: 20190413
  2. LORATADIN [Concomitant]
     Active Substance: LORATADINE
  3. LOETTE [Concomitant]
     Active Substance: ETHINYL ESTRADIOL\LEVONORGESTREL

REACTIONS (5)
  - Sinusitis [Unknown]
  - Ear discomfort [Not Recovered/Not Resolved]
  - Epistaxis [Unknown]
  - Sinus congestion [Not Recovered/Not Resolved]
  - Head discomfort [Not Recovered/Not Resolved]

NARRATIVE: CASE EVENT DATE: 20180123
